FAERS Safety Report 4515443-5 (Version None)
Quarter: 2004Q4

REPORT INFORMATION
  Report Type: 
  Country: None (occurrence: None)
  Receive Date: 20041126
  Receipt Date: 20041115
  Transmission Date: 20050328
  Serious: Yes (Hospitalization, Disabling, Other)
  Sender: FDA-Public Use
  Company Number: 2004093175

PATIENT
  Age: 71 Year
  Sex: Male
  Weight: 83.9154 kg

DRUGS (4)
  1. LIPITOR [Suspect]
     Indication: BLOOD CHOLESTEROL INCREASED
     Dosage: 10 MG (10 MG, 1 IN 1 D), ORAL
     Route: 048
     Dates: start: 20030101
  2. TAMSULOSIN (TAMSULOSIN) [Concomitant]
  3. RAMIPRIL [Concomitant]
  4. WARFARIN SODIUM [Concomitant]

REACTIONS (2)
  - BRAIN DAMAGE [None]
  - CEREBROVASCULAR ACCIDENT [None]
